FAERS Safety Report 9948120 (Version 1)
Quarter: 2014Q1

REPORT INFORMATION
  Report Type: Report from Study
  Country: US (occurrence: US)
  Receive Date: 20140303
  Receipt Date: 20140303
  Transmission Date: 20141002
  Serious: No
  Sender: FDA-Public Use
  Company Number: US-ABBVIE-13P-163-1056585-00

PATIENT
  Age: 58 Year
  Sex: Female

DRUGS (22)
  1. HUMIRA [Suspect]
     Indication: RHEUMATOID ARTHRITIS
     Dates: start: 20130128
  2. BUPROPION HCL [Concomitant]
     Indication: AFFECTIVE DISORDER
  3. BUPROPION HCL [Concomitant]
     Indication: SMOKING CESSATION THERAPY
  4. MODAFINIL [Concomitant]
     Indication: FATIGUE
  5. LISINOPRIL [Concomitant]
     Indication: PRODUCT USED FOR UNKNOWN INDICATION
  6. ALPRAZOLAM [Concomitant]
     Indication: ANGER
  7. HYDROCODONE [Concomitant]
     Indication: PAIN
     Dosage: 10/325MG, 4 TIMES DAILY, AS NEEDED
  8. GEMFIBROZIL [Concomitant]
     Indication: BLOOD TRIGLYCERIDES
  9. METFORMIN [Concomitant]
     Indication: DIABETES MELLITUS
  10. ESTRASIDE [Concomitant]
     Indication: PRODUCT USED FOR UNKNOWN INDICATION
     Dosage: 0.62/1.25MG DAILY
  11. FOLIC ACID [Concomitant]
     Indication: PRODUCT USED FOR UNKNOWN INDICATION
     Dosage: TWICE DAILY
  12. LAMOTRIGINE [Concomitant]
     Indication: AFFECTIVE DISORDER
     Dosage: 100MG AT BEDTIME, 50MG IN THE MORNING
  13. CITALOPRAM [Concomitant]
     Indication: AFFECTIVE DISORDER
  14. CHLORTHALIDONE [Concomitant]
     Indication: BLOOD PRESSURE
  15. COLACE [Concomitant]
     Indication: CONSTIPATION PROPHYLAXIS
  16. METHOTREXATE [Concomitant]
     Indication: PRODUCT USED FOR UNKNOWN INDICATION
  17. METHOTREXATE [Concomitant]
     Dates: start: 20130225
  18. BC845 MJ-65 [Concomitant]
     Indication: HEADACHE
     Dosage: POWDER, UP TO 4 TIMES DAILY
     Route: 048
  19. CETIRIZINE [Concomitant]
     Indication: HYPERSENSITIVITY
  20. MOMETASONE [Concomitant]
     Indication: ECZEMA
     Dosage: 5 TO 6 TIMES DAILY, AS NEEDED, HAS NOT USED IN A LONG TIME
     Route: 061
  21. DYMISTA [Concomitant]
     Indication: HYPERSENSITIVITY
     Dosage: TWICE DAILY
  22. OMEPRAZOLE [Concomitant]
     Indication: GASTROOESOPHAGEAL REFLUX DISEASE

REACTIONS (3)
  - Injection site pain [Not Recovered/Not Resolved]
  - Paranasal sinus hypersecretion [Not Recovered/Not Resolved]
  - Pain [Not Recovered/Not Resolved]
